FAERS Safety Report 7648710-7 (Version None)
Quarter: 2011Q3

REPORT INFORMATION
  Report Type: 
  Country: None (occurrence: None)
  Receive Date: 20110801
  Receipt Date: 20110722
  Transmission Date: 20111222
  Serious: Yes (Other)
  Sender: FDA-Public Use
  Company Number: PHHY2011AU66638

PATIENT
  Sex: Female

DRUGS (1)
  1. ZOLEDRONOC ACID [Suspect]
     Indication: OSTEOPOROSIS
     Dosage: UNK UKN, UNK
     Route: 042

REACTIONS (5)
  - INFLUENZA LIKE ILLNESS [None]
  - JOINT EFFUSION [None]
  - ARTHRALGIA [None]
  - BLOOD CREATININE INCREASED [None]
  - SERUM SICKNESS [None]
